FAERS Safety Report 9658957 (Version 5)
Quarter: 2014Q1

REPORT INFORMATION
  Report Type: Spontaneous
  Country: NO (occurrence: NO)
  Receive Date: 20131031
  Receipt Date: 20140219
  Transmission Date: 20141002
  Serious: Yes (Death)
  Sender: FDA-Public Use
  Company Number: NO-ROCHE-1297165

PATIENT
  Age: 62 Year
  Sex: Male

DRUGS (8)
  1. ZELBORAF [Suspect]
     Indication: METASTATIC MALIGNANT MELANOMA
     Route: 048
     Dates: start: 20131001, end: 20131101
  2. DEXAMETHASONE [Concomitant]
     Indication: NAUSEA
     Route: 048
     Dates: start: 20131002, end: 20131101
  3. MARZINE [Concomitant]
     Indication: NAUSEA
     Route: 048
     Dates: start: 20130929, end: 20131101
  4. DUPHALAC [Concomitant]
     Route: 065
     Dates: start: 20130917, end: 20131102
  5. LAXOBERAL [Concomitant]
     Indication: CONSTIPATION
     Route: 048
     Dates: start: 20130917, end: 20131101
  6. AFIPRAN [Concomitant]
     Indication: NAUSEA
     Route: 048
     Dates: start: 20130917, end: 20131101
  7. DOLCONTIN [Concomitant]
     Indication: PAIN
     Route: 048
     Dates: start: 20130917, end: 20131101
  8. SOMAC [Concomitant]
     Indication: PROPHYLAXIS AGAINST GASTROINTESTINAL ULCER
     Route: 048
     Dates: start: 20130917, end: 20131101

REACTIONS (4)
  - Death [Fatal]
  - Neutropenia [Fatal]
  - Thrombocytopenia [Fatal]
  - Pneumonia [Unknown]
